FAERS Safety Report 5158848-4 (Version None)
Quarter: 2006Q4

REPORT INFORMATION
  Report Type: 
  Country: None (occurrence: None)
  Receive Date: 20061117
  Receipt Date: 20061113
  Transmission Date: 20070319
  Serious: Yes (Hospitalization)
  Sender: FDA-Public Use
  Company Number: 163-21880-06110133

PATIENT
  Age: 68 Year
  Sex: Female

DRUGS (6)
  1. REVLIMID [Suspect]
     Indication: MULTIPLE MYELOMA
     Dosage: 10 MG, ORAL
     Route: 048
     Dates: start: 20061012
  2. DEXAMETHASONE TAB [Concomitant]
  3. DETROL [Concomitant]
  4. FORADIL AEROLIZER (FORMOTEROL FUMARATE) [Concomitant]
  5. NEXIUM [Concomitant]
  6. TOPROL-XL [Concomitant]

REACTIONS (3)
  - ACCIDENTAL OVERDOSE [None]
  - PNEUMONIA [None]
  - SALMONELLOSIS [None]
